FAERS Safety Report 5708074-2 (Version None)
Quarter: 2008Q2

REPORT INFORMATION
  Report Type: 
  Country: None (occurrence: None)
  Receive Date: 20080417
  Receipt Date: 20080404
  Transmission Date: 20081010
  Serious: Yes (Death, Life-Threatening)
  Sender: FDA-Public Use
  Company Number: FR-ELI_LILLY_AND_COMPANY-FR200802003797

PATIENT
  Age: 48 Year
  Sex: Female
  Weight: 53 kg

DRUGS (16)
  1. XIGRIS [Suspect]
     Indication: SEPTIC SHOCK
     Dosage: 30 MG, DAILY (1/D)
     Route: 042
     Dates: start: 20080217, end: 20080217
  2. SEROPLEX [Concomitant]
     Indication: DEPRESSION
     Dosage: 1 D/F, DAILY (1/D)
  3. BROMAZEPAM [Concomitant]
     Indication: DEPRESSION
     Dosage: 1 D/F, DAILY (1/D)
  4. PARACETAMOL [Concomitant]
  5. TIORFAN [Concomitant]
  6. LOPERAMIDE HCL [Concomitant]
  7. VOGALENE [Concomitant]
  8. CLAFORAN [Concomitant]
  9. OFLOCET [Concomitant]
  10. NORADRENALIN /00127501/ [Concomitant]
  11. TAVANIC [Concomitant]
  12. FLAGYL [Concomitant]
  13. VANCOMYCIN [Concomitant]
  14. AMIKACIN [Concomitant]
  15. DOBUTREX [Concomitant]
  16. NEXIUM [Concomitant]

REACTIONS (2)
  - THROMBOCYTOPENIA [None]
  - TOXIC SHOCK SYNDROME STREPTOCOCCAL [None]
